FAERS Safety Report 4697685-1 (Version None)
Quarter: 2005Q2

REPORT INFORMATION
  Report Type: 
  Country: None (occurrence: None)
  Receive Date: 20050622
  Receipt Date: 20050603
  Transmission Date: 20051028
  Serious: Yes (Hospitalization)
  Sender: FDA-Public Use
  Company Number: ATO-05-0202

PATIENT
  Age: 57 Year
  Sex: Female
  Weight: 69.4003 kg

DRUGS (6)
  1. TRISENOX [Suspect]
     Indication: MULTIPLE MYELOMA
     Dosage: 17.2 MG (17.2 MG, UNK), INTRAVENOUS
     Route: 042
     Dates: start: 20050524, end: 20050527
  2. BORTEZOMIB [Suspect]
     Indication: MULTIPLE MYELOMA
     Dosage: 2.26 MG (2.26 MG, UNK), INTRAVENOUS
     Route: 042
     Dates: start: 20050524, end: 20050527
  3. ASCORBIC ACID [Suspect]
     Indication: MULTIPLE MYELOMA
     Dates: start: 20050524, end: 20050527
  4. AREDIA [Concomitant]
  5. ATIVAN [Concomitant]
  6. NEURONTIN [Concomitant]

REACTIONS (3)
  - HYPOKALAEMIA [None]
  - LOBAR PNEUMONIA [None]
  - PROTEINURIA [None]
